FAERS Safety Report 4960400-8 (Version None)
Quarter: 2006Q1

REPORT INFORMATION
  Report Type: 
  Country: None (occurrence: None)
  Receive Date: 20060328
  Receipt Date: 20060314
  Transmission Date: 20060701
  Serious: Yes (Death)
  Sender: FDA-Public Use
  Company Number: 2006037088

PATIENT
  Age: 58 Year
  Sex: Male

DRUGS (38)
  1. SUTENT [Suspect]
     Indication: RENAL CELL CARCINOMA STAGE UNSPECIFIED
     Dosage: 50 MG (50 MG, QD INTERVAL: EVERY DAY), ORAL; SEE IMAGE
     Route: 048
     Dates: start: 20060104, end: 20060121
  2. SUTENT [Suspect]
     Indication: RENAL CELL CARCINOMA STAGE UNSPECIFIED
     Dosage: 50 MG (50 MG, QD INTERVAL: EVERY DAY), ORAL; SEE IMAGE
     Route: 048
     Dates: start: 20060203, end: 20060214
  3. CYCLONAMINE (ETAMSILATE) [Concomitant]
  4. EXACYL (TRANEXAMIC ACID) [Concomitant]
  5. CONTROLOC (PANTOPRAZOLE) [Concomitant]
  6. MORPHINE [Concomitant]
  7. ZOFRAN [Concomitant]
  8. METOCLOPRAMIDE [Concomitant]
  9. DEXTROSE [Concomitant]
  10. SOLUTIO RINGERI ^CIV^ (CALCIUM CHLORIDE DIHYDRATE, POTASSIUM CHLORIDE, [Concomitant]
  11. FENACTIL ^POLFA-JELENIA^ (CHLORPROMAZINE HYDROCHLORIDE) [Concomitant]
  12. DEXTRAN (DEXTRAN) [Concomitant]
  13. PYRALGIN (METAMIZOLE SODIUM) [Concomitant]
  14. NO-SPA (DROTAVERINE HYDROCHLORIDE) [Concomitant]
  15. TIENAM (CILASTATIN, IMIPENEM) [Concomitant]
  16. METRONIDAZOLE [Concomitant]
  17. HYDROCORTISONE [Concomitant]
  18. FUROSEMIDE [Concomitant]
  19. DOBUTAMINE (DOBUTAMINE) [Concomitant]
  20. CITALOPRAM (CITALOPRAM) [Concomitant]
  21. AMIZEPIN (CARBAMAZEPINE) [Concomitant]
  22. PERNAZINIUM (PERAZINE DIMALEATE) [Concomitant]
  23. HYDROXYZINE [Concomitant]
  24. KALDYUM (POTASSIUM CHLORIDE) [Concomitant]
  25. CALCIUM (CALCIUM) [Concomitant]
  26. FRAXIPARINE (HEPARIN-FRACTION, CALCIUM SALT) [Concomitant]
  27. DUROGESIC (FENTANYL) [Concomitant]
  28. MORPHINE SULFATE [Concomitant]
  29. KETONAL (KETOPROFEN) [Concomitant]
  30. ACETAMINOPHEN [Concomitant]
  31. POLPRAZOL (OMEPRAZOLE) [Concomitant]
  32. TIZANIDINE HCL [Concomitant]
  33. ESPUMISIN (DIMETICONE) [Concomitant]
  34. CYCLONAMINE (ETAMSILATE) [Concomitant]
  35. EXACYL (TRANEXAMIC ACID) [Concomitant]
  36. LOPERAMIDE HCL [Concomitant]
  37. RED BLOOD CELLS [Concomitant]
  38. DOPAMINE HCL [Concomitant]

REACTIONS (7)
  - CONFUSIONAL STATE [None]
  - GASTROINTESTINAL HAEMORRHAGE [None]
  - GENERAL PHYSICAL HEALTH DETERIORATION [None]
  - HAEMATEMESIS [None]
  - HYPOTENSION [None]
  - OVERDOSE [None]
  - SUBILEUS [None]
